FAERS Safety Report 5290368-9 (Version None)
Quarter: 2007Q2

REPORT INFORMATION
  Report Type: 
  Country: None (occurrence: None)
  Receive Date: 20070409
  Receipt Date: 20070327
  Transmission Date: 20071010
  Serious: Yes (Hospitalization)
  Sender: FDA-Public Use
  Company Number: US-AVENTIS-200712198US

PATIENT
  Sex: Male

DRUGS (1)
  1. LASIX [Suspect]
     Dosage: DOSE: 4 MG GIVEN OVER 5-10 MINUTES
     Route: 042
     Dates: start: 20070227, end: 20070227

REACTIONS (8)
  - ACIDOSIS [None]
  - CYANOSIS [None]
  - DYSPNOEA [None]
  - ELECTROCARDIOGRAM ST SEGMENT ELEVATION [None]
  - OXYGEN SATURATION DECREASED [None]
  - TACHYCARDIA [None]
  - UNRESPONSIVE TO STIMULI [None]
  - VENTRICULAR EXTRASYSTOLES [None]
